FAERS Safety Report 11003033 (Version 1)
Quarter: 2015Q2

REPORT INFORMATION
  Report Type: Report from Study
  Country: CA (occurrence: CA)
  Receive Date: 20150408
  Receipt Date: 20150408
  Transmission Date: 20150821
  Serious: Yes (Other)
  Sender: FDA-Public Use
  Company Number: CA-ROCHE-1561848

PATIENT
  Age: 27 Year
  Sex: Female

DRUGS (2)
  1. RITUXAN [Suspect]
     Active Substance: RITUXIMAB
     Indication: RHEUMATOID ARTHRITIS
     Dosage: FREQUENCY: DAY 1 AND 15
     Route: 042
     Dates: start: 20141016
  2. EMTEC (CANADA) [Concomitant]
     Route: 065

REACTIONS (1)
  - Costochondritis [Unknown]

NARRATIVE: CASE EVENT DATE: 201412
